FAERS Safety Report 4420888-8 (Version None)
Quarter: 2004Q3

REPORT INFORMATION
  Report Type: 
  Country: None (occurrence: None)
  Receive Date: 20040804
  Receipt Date: 20040720
  Transmission Date: 20050211
  Serious: Yes (Hospitalization, Other)
  Sender: FDA-Public Use
  Company Number: BR-2004-029108

PATIENT
  Age: 22 Year
  Sex: Female

DRUGS (7)
  1. BETAFERON [Suspect]
     Indication: MULTIPLE SCLEROSIS
     Dosage: 8 MIU, EVERY 2D, SUBCUTANEOUS
     Route: 058
     Dates: start: 20031001
  2. WARFARIN SODIUM [Suspect]
     Indication: THROMBOSIS
     Dosage: ORAL
     Route: 048
     Dates: start: 20040601
  3. RETEMIC (OXYBUTYNIN HYDROCHLORIDE) [Concomitant]
  4. LIORESAL  NOVARTIS [Concomitant]
  5. RIVOTRIL (CLONAZEPAM) [Concomitant]
  6. PROZAC [Concomitant]
  7. PAMELOR [Concomitant]

REACTIONS (5)
  - ABDOMINAL PAIN [None]
  - DIARRHOEA [None]
  - DIARRHOEA HAEMORRHAGIC [None]
  - SUICIDAL IDEATION [None]
  - THROMBOSIS [None]
